FAERS Safety Report 15592460 (Version 2)
Quarter: 2018Q4

REPORT INFORMATION
  Report Type: Spontaneous
  Country: DE (occurrence: DE)
  Receive Date: 20181106
  Receipt Date: 20181127
  Transmission Date: 20190205
  Serious: Yes (Hospitalization, Other)
  Sender: FDA-Public Use
  Company Number: DE-PFIZER INC-2018448168

PATIENT
  Age: 65 Year
  Sex: Male
  Weight: 104 kg

DRUGS (34)
  1. DEXPANTHENOL. [Concomitant]
     Active Substance: DEXPANTHENOL
  2. VICTOZA [Concomitant]
     Active Substance: LIRAGLUTIDE
  3. PEGYLATED LIPOSOMAL IRINOTECAN [Suspect]
     Active Substance: IRINOTECAN HYDROCHLORIDE
     Indication: COLORECTAL CANCER METASTATIC
     Dosage: 422 MG, UNK
     Dates: start: 20130919, end: 20131010
  4. ASPIRIN. [Concomitant]
     Active Substance: ASPIRIN
  5. PANTOZOL [Concomitant]
     Active Substance: PANTOPRAZOLE SODIUM
  6. FUROSEMID [Concomitant]
     Active Substance: FUROSEMIDE
  7. AMARYL [Concomitant]
     Active Substance: GLIMEPIRIDE
  8. MAGNESIUM HYDROXIDE. [Concomitant]
     Active Substance: MAGNESIUM HYDROXIDE
     Indication: PRODUCT USED FOR UNKNOWN INDICATION
  9. BELOC ZOK [Concomitant]
     Active Substance: METOPROLOL SUCCINATE
     Dates: start: 20130919
  10. ACETYLSALICYLIC ACID [Concomitant]
     Active Substance: ASPIRIN
  11. OXETACAINE [Concomitant]
     Active Substance: OXETHAZAINE
  12. PANTENOL [DEXPANTHENOL] [Concomitant]
  13. DIGITOXIN [Concomitant]
     Active Substance: DIGITOXIN
  14. PANTOPRAZOLE SODIUM. [Concomitant]
     Active Substance: PANTOPRAZOLE SODIUM
     Indication: PRODUCT USED FOR UNKNOWN INDICATION
  15. INSULIN DETEMIR [Concomitant]
     Active Substance: INSULIN DETEMIR
  16. FENTANYL. [Concomitant]
     Active Substance: FENTANYL
     Indication: PRODUCT USED FOR UNKNOWN INDICATION
  17. TEPILTA [ALUMINIUM HYDROXIDE GEL;MAGNESIUM HYDROXIDE;OXETACAINE] [Concomitant]
  18. XELODA [Suspect]
     Active Substance: CAPECITABINE
     Indication: COLORECTAL CANCER
     Dosage: 3300 TO 2500 MG
     Route: 048
     Dates: start: 20130919, end: 20131003
  19. GLIBENCLAMID [Concomitant]
     Active Substance: GLYBURIDE
  20. TOREM [TORASEMIDE] [Concomitant]
  21. INSULIN [Concomitant]
     Active Substance: INSULIN NOS
  22. GLIBENCLAMIDE [Concomitant]
     Active Substance: GLYBURIDE
  23. HYDROCHLOROTHIAZIDE. [Concomitant]
     Active Substance: HYDROCHLOROTHIAZIDE
  24. SPIRONOLACTONE. [Concomitant]
     Active Substance: SPIRONOLACTONE
  25. LEVEMIR [Concomitant]
     Active Substance: INSULIN DETEMIR
  26. GLIMEPIRIDE. [Concomitant]
     Active Substance: GLIMEPIRIDE
  27. RAMIPRIL. [Concomitant]
     Active Substance: RAMIPRIL
     Dates: start: 20130919
  28. TORASEMIDE [Concomitant]
     Active Substance: TORSEMIDE
  29. METOPROLOL TARTRATE. [Concomitant]
     Active Substance: METOPROLOL TARTRATE
  30. AVASTIN [Suspect]
     Active Substance: BEVACIZUMAB
     Indication: COLORECTAL CANCER METASTATIC
     Dosage: 773 MG, UNK
     Route: 042
     Dates: start: 20130919, end: 20131010
  31. LIRAGLUTIDE [Concomitant]
     Active Substance: LIRAGLUTIDE
  32. ALUMINIUM HYDROXIDE [Concomitant]
     Active Substance: ALUMINUM HYDROXIDE
  33. TINZAPARIN SODIUM [Concomitant]
     Active Substance: TINZAPARIN SODIUM
  34. INNOHEP [Concomitant]
     Active Substance: TINZAPARIN SODIUM

REACTIONS (6)
  - Stomatitis [Recovered/Resolved]
  - Pancytopenia [Recovered/Resolved]
  - Dysphagia [Recovered/Resolved]
  - General physical health deterioration [Recovered/Resolved]
  - Hyperkalaemia [Recovered/Resolved]
  - Acute kidney injury [Recovered/Resolved]

NARRATIVE: CASE EVENT DATE: 20131017
